FAERS Safety Report 7445053-1 (Version None)
Quarter: 2011Q2

REPORT INFORMATION
  Report Type: 
  Country: None (occurrence: None)
  Receive Date: 20110426
  Receipt Date: 20110426
  Transmission Date: 20111010
  Serious: Yes (Hospitalization)
  Sender: FDA-Public Use
  Company Number: None

PATIENT
  Age: 28 Year
  Sex: Male
  Weight: 65.7716 kg

DRUGS (2)
  1. TOPAMAX [Suspect]
     Indication: EPILEPSY
     Dosage: 100 MG. TWICE A DAY PO
     Route: 048
     Dates: start: 20030101
  2. LAMICTAL XR [Suspect]
     Indication: EPILEPSY
     Dosage: 450 MG. TWICE A DAY PO
     Route: 048
     Dates: start: 20000101

REACTIONS (12)
  - ANURIA [None]
  - ABASIA [None]
  - VISUAL IMPAIRMENT [None]
  - NYSTAGMUS [None]
  - ABDOMINAL PAIN [None]
  - ATAXIA [None]
  - DYSKINESIA [None]
  - DYSARTHRIA [None]
  - NAUSEA [None]
  - DIARRHOEA [None]
  - TOXICITY TO VARIOUS AGENTS [None]
  - MYDRIASIS [None]
